FAERS Safety Report 14548327 (Version 1)
Quarter: 2018Q1

REPORT INFORMATION
  Report Type: Spontaneous
  Country: US (occurrence: US)
  Receive Date: 20180219
  Receipt Date: 20180219
  Transmission Date: 20180509
  Serious: No
  Sender: FDA-Public Use
  Company Number: US-ROCHE-1888824

PATIENT
  Age: 38 Year
  Sex: Male

DRUGS (1)
  1. XOLAIR [Suspect]
     Active Substance: OMALIZUMAB
     Indication: PRODUCT USED FOR UNKNOWN INDICATION
     Dosage: INJECT 300MG SUBCUTANEOUSLY EVERY 6 WEEKS
     Route: 058

REACTIONS (2)
  - Rash erythematous [Unknown]
  - Pruritus [Unknown]
